FAERS Safety Report 6717697-3 (Version None)
Quarter: 2010Q2

REPORT INFORMATION
  Report Type: 
  Country: None (occurrence: None)
  Receive Date: 20100510
  Receipt Date: 20100430
  Transmission Date: 20101027
  Serious: Yes (Death, Hospitalization)
  Sender: FDA-Public Use
  Company Number: FR-PFIZER INC-2009260635

PATIENT
  Age: 53 Year
  Sex: Male

DRUGS (3)
  1. CISPLATIN [Suspect]
     Indication: GASTRIC CANCER
     Dosage: 276 MG
     Dates: start: 20080526, end: 20080707
  2. EPIRUBICIN HYDROCHLORIDE [Suspect]
     Indication: GASTRIC CANCER
     Dosage: 225 MG
     Dates: start: 20080526, end: 20080707
  3. CAPECITABINE [Suspect]
     Indication: GASTRIC CANCER
     Dosage: 126000 MG
     Dates: start: 20080526, end: 20080707

REACTIONS (1)
  - GASTROINTESTINAL HAEMORRHAGE [None]
